FAERS Safety Report 5390375-1 (Version None)
Quarter: 2007Q3

REPORT INFORMATION
  Report Type: 
  Country: None (occurrence: None)
  Receive Date: 20070718
  Receipt Date: 20070706
  Transmission Date: 20080115
  Serious: Yes (Hospitalization, Other)
  Sender: FDA-Public Use
  Company Number: GB-PFIZER INC-2007054133

PATIENT
  Age: 62 Year
  Sex: Female
  Weight: 80 kg

DRUGS (4)
  1. EPANUTIN SUSPENSION [Suspect]
     Indication: EPILEPSY
     Route: 048
     Dates: start: 20030101, end: 20070101
  2. CHEMOTHERAPY NOS [Suspect]
     Indication: BREAST DISORDER
  3. FLUCLOXACILLIN [Suspect]
     Indication: BREAST DISORDER
  4. CIPROFLOXACIN [Concomitant]
     Indication: INFECTION
     Route: 048
     Dates: start: 20070514, end: 20070518

REACTIONS (10)
  - ANTICONVULSANT DRUG LEVEL INCREASED [None]
  - BREAST CANCER [None]
  - BREAST DISORDER [None]
  - DIZZINESS [None]
  - DYSGEUSIA [None]
  - HEAD DISCOMFORT [None]
  - INFECTION [None]
  - LEUKOPENIA [None]
  - MALAISE [None]
  - NYSTAGMUS [None]
